FAERS Safety Report 25516197 (Version 1)
Quarter: 2025Q3

REPORT INFORMATION
  Report Type: Spontaneous
  Country: US (occurrence: US)
  Receive Date: 20250704
  Receipt Date: 20250704
  Transmission Date: 20251020
  Serious: No
  Sender: RADIUS PHARM
  Company Number: US-RADIUS HEALTH INC.-2025US001520

PATIENT
  Sex: Female

DRUGS (4)
  1. TYMLOS [Suspect]
     Active Substance: ABALOPARATIDE
     Indication: Senile osteoporosis
     Dosage: 80 MICROGRAM, DAILY
     Route: 058
     Dates: start: 20250131
  2. CEQUA [Concomitant]
     Active Substance: CYCLOSPORINE
     Indication: Product used for unknown indication
     Route: 065
  3. NUTRAFOL [Concomitant]
     Indication: Product used for unknown indication
     Route: 065
  4. SPIRONOLACTONE [Concomitant]
     Active Substance: SPIRONOLACTONE
     Indication: Product used for unknown indication
     Route: 065

REACTIONS (8)
  - Nausea [Unknown]
  - Dizziness [Unknown]
  - Brain fog [Unknown]
  - Arthralgia [Unknown]
  - Pain [Unknown]
  - Headache [Unknown]
  - Fatigue [Unknown]
  - Rash [Unknown]
